FAERS Safety Report 6742760-0 (Version None)
Quarter: 2010Q2

REPORT INFORMATION
  Report Type: 
  Country: None (occurrence: None)
  Receive Date: 20100526
  Receipt Date: 20100426
  Transmission Date: 20101027
  Serious: No
  Sender: FDA-Public Use
  Company Number: US-ABBOTT-10P-163-0641676-00

PATIENT
  Sex: Female
  Weight: 72.186 kg

DRUGS (4)
  1. ZEMPLAR [Suspect]
     Indication: VITAMIN D DEFICIENCY
     Route: 048
     Dates: start: 20090101, end: 20100101
  2. DEPAKOTE [Concomitant]
     Indication: DEPRESSION
  3. WELLBUTRIN [Concomitant]
     Indication: DEPRESSION
  4. NATURAL SUPPLEMENTS [Concomitant]
     Indication: SUPPLEMENTATION THERAPY

REACTIONS (2)
  - ASTHENIA [None]
  - BONE PAIN [None]
